FAERS Safety Report 9996995 (Version 1)
Quarter: 2014Q1

REPORT INFORMATION
  Report Type: Spontaneous
  Country: US (occurrence: None)
  Receive Date: 20140228
  Receipt Date: 20140228
  Transmission Date: 20141002
  Serious: Yes (Hospitalization)
  Sender: FDA-Public Use
  Company Number: 20140041

PATIENT
  Sex: Female

DRUGS (1)
  1. INJECTAFER  (FERRIC CARBOXYMALTOSE INJECTION) [Suspect]
     Indication: IRON DEFICIENCY ANAEMIA
     Route: 042

REACTIONS (4)
  - Abdominal pain [None]
  - Abdominal pain [None]
  - Nausea [None]
  - Vomiting [None]
